FAERS Safety Report 6020682-0 (Version None)
Quarter: 2008Q4

REPORT INFORMATION
  Report Type: 
  Country: None (occurrence: None)
  Receive Date: 20081222
  Receipt Date: 20081209
  Transmission Date: 20090506
  Serious: Yes (Hospitalization)
  Sender: FDA-Public Use
  Company Number: GXKR2008CA11787

PATIENT
  Age: 16 Month
  Sex: Male

DRUGS (3)
  1. NAPROXEN [Suspect]
     Indication: JUVENILE ARTHRITIS
     Dosage: 17 MG/KG
  2. FERROUS FUMARATE [Concomitant]
  3. TRIAMCINOLONE [Concomitant]

REACTIONS (8)
  - BLOOD PRESSURE DECREASED [None]
  - CARDIAC MURMUR [None]
  - HYPOALBUMINAEMIA [None]
  - IRON DEFICIENCY ANAEMIA [None]
  - OCCULT BLOOD POSITIVE [None]
  - PLATELET COUNT INCREASED [None]
  - PROTEIN-LOSING GASTROENTEROPATHY [None]
  - WHITE BLOOD CELL COUNT INCREASED [None]
